FAERS Safety Report 15360244 (Version 1)
Quarter: 2018Q3

REPORT INFORMATION
  Report Type: Spontaneous
  Country: US (occurrence: US)
  Receive Date: 20180907
  Receipt Date: 20180907
  Transmission Date: 20181010
  Serious: No
  Sender: FDA-Public Use
  Company Number: US-JNJFOC-20180828397

PATIENT
  Age: 4 Decade
  Sex: Male

DRUGS (3)
  1. SIMPONI ARIA [Suspect]
     Active Substance: GOLIMUMAB
     Indication: PSORIATIC ARTHROPATHY
     Route: 042
  2. SIMPONI ARIA [Suspect]
     Active Substance: GOLIMUMAB
     Indication: PSORIASIS
     Route: 042
  3. SIMPONI ARIA [Suspect]
     Active Substance: GOLIMUMAB
     Indication: SPONDYLITIS
     Route: 042

REACTIONS (1)
  - Pharyngitis [Unknown]
